FAERS Safety Report 4909656-8 (Version None)
Quarter: 2006Q1

REPORT INFORMATION
  Report Type: 
  Country: None (occurrence: None)
  Receive Date: 20060209
  Receipt Date: 20060123
  Transmission Date: 20060701
  Serious: Yes (Other)
  Sender: FDA-Public Use
  Company Number: US200601004956

PATIENT

DRUGS (2)
  1. FORTEO [Suspect]
     Indication: OSTEOPOROSIS
     Dates: start: 20051001, end: 20051201
  2. FORTEO [Concomitant]

REACTIONS (5)
  - ALOPECIA [None]
  - FALL [None]
  - HYPERSENSITIVITY [None]
  - PELVIC FRACTURE [None]
  - VERTIGO [None]
